FAERS Safety Report 6036503-6 (Version None)
Quarter: 2009Q1

REPORT INFORMATION
  Report Type: 
  Country: None (occurrence: None)
  Receive Date: 20090114
  Receipt Date: 20080715
  Transmission Date: 20090719
  Serious: Yes (Hospitalization)
  Sender: FDA-Public Use
  Company Number: US-RB-003468-08

PATIENT
  Age: 65 Year
  Sex: Female

DRUGS (1)
  1. MUCINEX [Suspect]
     Route: 048
     Dates: start: 20080515

REACTIONS (1)
  - LOSS OF CONSCIOUSNESS [None]
